FAERS Safety Report 18927373 (Version 4)
Quarter: 2022Q1

REPORT INFORMATION
  Report Type: Other
  Country: CA (occurrence: CA)
  Receive Date: 20210223
  Receipt Date: 20220124
  Transmission Date: 20220424
  Serious: Yes (Other)
  Sender: FDA-Public Use
  Company Number: CA-LUPIN PHARMACEUTICALS INC.-2021-02037

PATIENT
  Age: 11 Year
  Sex: Female

DRUGS (5)
  1. CEPHALEXIN [Suspect]
     Active Substance: CEPHALEXIN
     Indication: Infection prophylaxis
     Dosage: UNK
     Route: 065
  2. ORENCIA [Suspect]
     Active Substance: ABATACEPT
     Indication: Gene mutation
     Dosage: 20 MILLIGRAM/KILOGRAM
     Route: 042
  3. GANCICLOVIR [Suspect]
     Active Substance: GANCICLOVIR
     Indication: Cytomegalovirus viraemia
     Dosage: UNK
     Route: 042
  4. HUMAN IMMUNOGLOBULIN G [Suspect]
     Active Substance: HUMAN IMMUNOGLOBULIN G
     Indication: Product used for unknown indication
     Dosage: UNK (ONCE EVERY 1 MONTH)
     Route: 042
  5. SIROLIMUS [Suspect]
     Active Substance: SIROLIMUS
     Indication: Gene mutation
     Dosage: 1.3 MILLIGRAM, BID
     Route: 065

REACTIONS (7)
  - Bronchiectasis [Unknown]
  - Hypokalaemia [Unknown]
  - Immune thrombocytopenia [Unknown]
  - Neutropenia [Unknown]
  - Renal failure [Unknown]
  - Product use issue [Unknown]
  - Off label use [Unknown]
